FAERS Safety Report 7238912-6 (Version None)
Quarter: 2011Q1

REPORT INFORMATION
  Report Type: 
  Country: None (occurrence: None)
  Receive Date: 20110121
  Receipt Date: 20110117
  Transmission Date: 20110831
  Serious: Yes (Life-Threatening)
  Sender: FDA-Public Use
  Company Number: IT-ASTRAZENECA-2010SE57627

PATIENT
  Age: 20088 Day
  Sex: Female
  Weight: 68 kg

DRUGS (4)
  1. MARCAINA [Suspect]
     Indication: SPINAL ANAESTHESIA
     Route: 037
     Dates: start: 20101129, end: 20101129
  2. TARGOCID [Suspect]
     Indication: ANTIBIOTIC PROPHYLAXIS
     Route: 042
     Dates: start: 20101129, end: 20101129
  3. DIPRIVAN [Suspect]
     Indication: SEDATION
     Dosage: 0,3 MG7KG/HOUR
     Route: 042
     Dates: start: 20101129, end: 20101129
  4. PEFLOX [Suspect]
     Indication: ANTIBIOTIC PROPHYLAXIS
     Dosage: 400 MG IN 250 ML GLUCOSE SOLUTION 5%
     Dates: start: 20101129, end: 20101129

REACTIONS (2)
  - ERYTHEMA [None]
  - CARDIO-RESPIRATORY ARREST [None]
